FAERS Safety Report 11039360 (Version 1)
Quarter: 2015Q2

REPORT INFORMATION
  Report Type: Other
  Country: US (occurrence: US)
  Receive Date: 20150416
  Receipt Date: 20150416
  Transmission Date: 20150821
  Serious: No
  Sender: FDA-Public Use
  Company Number: US-MYLANLABS-2015M1005063

PATIENT
  Sex: Female

DRUGS (3)
  1. GRAPEFRUIT SEED EXTRACT [Suspect]
     Active Substance: GRAPEFRUIT SEED EXTRACT
     Indication: CLOSTRIDIUM DIFFICILE INFECTION
     Dosage: UNK
     Dates: start: 2014
  2. ESTRADIOL TRANSDERMAL SYSTEM [Suspect]
     Active Substance: ESTRADIOL
     Indication: HORMONE REPLACEMENT THERAPY
     Dosage: 0.05 MG/QD, CHANGES X2WK
     Route: 062
     Dates: start: 201501, end: 201502
  3. DIFICID [Suspect]
     Active Substance: FIDAXOMICIN
     Indication: CLOSTRIDIUM DIFFICILE INFECTION
     Dosage: UNK
     Dates: start: 201501, end: 201502

REACTIONS (5)
  - Dyspnoea [Recovered/Resolved]
  - Drug effect increased [Recovered/Resolved]
  - Drug interaction [Recovered/Resolved]
  - Headache [Recovered/Resolved]
  - Pain in extremity [Recovered/Resolved]

NARRATIVE: CASE EVENT DATE: 201501
